FAERS Safety Report 4982687-8 (Version None)
Quarter: 2006Q2

REPORT INFORMATION
  Report Type: 
  Country: None (occurrence: None)
  Receive Date: 20060425
  Receipt Date: 20050421
  Transmission Date: 20061013
  Serious: Yes (Hospitalization, Disabling)
  Sender: FDA-Public Use
  Company Number: US-MERCK-0504USA04282

PATIENT
  Age: 35 Year
  Sex: Female
  Weight: 91 kg

DRUGS (2)
  1. VIOXX [Suspect]
     Indication: MIGRAINE
     Route: 048
     Dates: start: 20040501, end: 20040901
  2. COCAINE [Suspect]
     Route: 065

REACTIONS (13)
  - BENIGN INTRACRANIAL HYPERTENSION [None]
  - CEREBROVASCULAR ACCIDENT [None]
  - DRUG SCREEN POSITIVE [None]
  - EYE DISORDER [None]
  - FATIGUE [None]
  - INFARCTION [None]
  - INJURY [None]
  - NEURITIS [None]
  - PAPILLOEDEMA [None]
  - PARAESTHESIA [None]
  - PETECHIAE [None]
  - PRESCRIBED OVERDOSE [None]
  - VISUAL DISTURBANCE [None]
